FAERS Safety Report 12574503 (Version 1)
Quarter: 2016Q3

REPORT INFORMATION
  Report Type: Spontaneous
  Country: US (occurrence: US)
  Receive Date: 20160720
  Receipt Date: 20160720
  Transmission Date: 20161109
  Serious: No
  Sender: FDA-Public Use
  Company Number: US-TARO-2016TAR00550

PATIENT
  Age: 1 Year
  Sex: Male

DRUGS (1)
  1. CETIRIZINE HCL SYRUP 1MG/ML RX [Suspect]
     Active Substance: CETIRIZINE HYDROCHLORIDE

REACTIONS (1)
  - Pruritus [Unknown]
